FAERS Safety Report 6900188-4 (Version None)
Quarter: 2010Q3

REPORT INFORMATION
  Report Type: 
  Country: None (occurrence: None)
  Receive Date: 20100803
  Receipt Date: 20100720
  Transmission Date: 20110219
  Serious: Yes (Other)
  Sender: FDA-Public Use
  Company Number: US-ELI_LILLY_AND_COMPANY-US201005003070

PATIENT
  Age: 22 Year
  Sex: Male
  Weight: 81.633 kg

DRUGS (4)
  1. PROZAC [Suspect]
     Indication: OBSESSIVE-COMPULSIVE DISORDER
     Dosage: 30 MG, UNK
     Dates: start: 20100114, end: 20100430
  2. STRATTERA [Suspect]
     Indication: ATTENTION DEFICIT/HYPERACTIVITY DISORDER
     Dosage: 25 MG, UNK
     Dates: start: 20100303, end: 20100325
  3. ZYPREXA [Suspect]
     Indication: OBSESSIVE-COMPULSIVE DISORDER
     Dosage: 5 MG, UNK
     Dates: start: 20100203, end: 20100211
  4. ABILIFY [Concomitant]
     Dosage: 2 MG, UNK
     Dates: start: 20100427

REACTIONS (4)
  - EJACULATION DISORDER [None]
  - HOMICIDAL IDEATION [None]
  - OFF LABEL USE [None]
  - SUICIDAL IDEATION [None]
